FAERS Safety Report 9222065 (Version 1)
Quarter: 2013Q2

REPORT INFORMATION
  Report Type: Spontaneous
  Country: US (occurrence: US)
  Receive Date: 20130410
  Receipt Date: 20130410
  Transmission Date: 20140414
  Serious: Yes (Other)
  Sender: FDA-Public Use
  Company Number: US-PFIZER INC-2013108575

PATIENT
  Age: 44 Year
  Sex: Female
  Weight: 53.52 kg

DRUGS (1)
  1. PREMPRO [Suspect]
     Indication: MENOPAUSE
     Dosage: 0.625/5MG, 1X/DAY
     Route: 048
     Dates: start: 20130321, end: 201304

REACTIONS (4)
  - Hypersensitivity [Recovering/Resolving]
  - Swollen tongue [Recovering/Resolving]
  - Swelling face [Recovering/Resolving]
  - Lip swelling [Recovering/Resolving]
